FAERS Safety Report 7984221-7 (Version None)
Quarter: 2011Q4

REPORT INFORMATION
  Report Type: 
  Country: None (occurrence: None)
  Receive Date: 20111214
  Receipt Date: 20111128
  Transmission Date: 20120403
  Serious: Yes (Death)
  Sender: FDA-Public Use
  Company Number: UTC-012831

PATIENT
  Age: 63 Year
  Sex: Female
  Weight: 66.4 kg

DRUGS (5)
  1. TYVASO [Suspect]
     Indication: COR PULMONALE CHRONIC
     Dosage: 216 MCG (54 MCG,4 IN 1 D),INHALATION
     Route: 055
     Dates: start: 20100626
  2. DIURETICS (DIURETICS) [Concomitant]
  3. TRACLEER [Concomitant]
  4. COUMADIN [Concomitant]
  5. REVATIO [Concomitant]

REACTIONS (1)
  - DEATH [None]
